FAERS Safety Report 10754870 (Version 1)
Quarter: 2015Q1

REPORT INFORMATION
  Report Type: Spontaneous
  Country: US (occurrence: None)
  Receive Date: 20150130
  Receipt Date: 20150130
  Transmission Date: 20150721
  Serious: Yes (Other)
  Sender: FDA-Public Use
  Company Number: None

PATIENT
  Age: 22 Year
  Sex: Female
  Weight: 74.84 kg

DRUGS (1)
  1. TAMIFLU [Suspect]
     Active Substance: OSELTAMIVIR PHOSPHATE
     Indication: INFLUENZA LIKE ILLNESS
     Dosage: 1, TWICE DAILY, TAKEN BY MOUTH
     Route: 048
     Dates: start: 20150111, end: 20150115

REACTIONS (8)
  - Gastric disorder [None]
  - Swelling face [None]
  - Stomatitis [None]
  - Local swelling [None]
  - Ulcer [None]
  - Oesophageal disorder [None]
  - Lip swelling [None]
  - Pain [None]

NARRATIVE: CASE EVENT DATE: 20150121
